FAERS Safety Report 5713280-7 (Version None)
Quarter: 2008Q2

REPORT INFORMATION
  Report Type: 
  Country: None (occurrence: None)
  Receive Date: 20080422
  Receipt Date: 20080418
  Transmission Date: 20081010
  Serious: Yes (Other)
  Sender: FDA-Public Use
  Company Number: CA-ASTRAZENECA-2008UW07701

PATIENT
  Age: 16405 Day
  Sex: Female

DRUGS (2)
  1. CRESTOR [Suspect]
     Indication: HYPERCHOLESTEROLAEMIA
     Route: 048
     Dates: start: 20080227, end: 20080414
  2. SALO SALK [Concomitant]
     Dosage: 8 MG TID PRN

REACTIONS (3)
  - PRURITUS [None]
  - RASH [None]
  - URTICARIA [None]
